FAERS Safety Report 25628120 (Version 1)
Quarter: 2025Q3

REPORT INFORMATION
  Report Type: Spontaneous
  Country: US (occurrence: US)
  Receive Date: 20250731
  Receipt Date: 20250731
  Transmission Date: 20251020
  Serious: No
  Sender: MYLAN
  Company Number: US-MYLANLABS-2025M1062199

PATIENT
  Sex: Female
  Weight: 86.36 kg

DRUGS (92)
  1. REVATIO [Suspect]
     Active Substance: SILDENAFIL CITRATE
     Indication: Product used for unknown indication
  2. REVATIO [Suspect]
     Active Substance: SILDENAFIL CITRATE
     Route: 065
  3. REVATIO [Suspect]
     Active Substance: SILDENAFIL CITRATE
     Route: 065
  4. REVATIO [Suspect]
     Active Substance: SILDENAFIL CITRATE
  5. DUPIXENT [Suspect]
     Active Substance: DUPILUMAB
     Indication: Dermatitis atopic
     Dosage: 300 MILLIGRAM, Q2W (1 EVERY 2 WEEKS)
  6. DUPIXENT [Suspect]
     Active Substance: DUPILUMAB
     Dosage: 300 MILLIGRAM, Q2W (1 EVERY 2 WEEKS)
  7. DUPIXENT [Suspect]
     Active Substance: DUPILUMAB
     Dosage: 300 MILLIGRAM, Q2W (1 EVERY 2 WEEKS)
     Route: 058
  8. DUPIXENT [Suspect]
     Active Substance: DUPILUMAB
     Dosage: 300 MILLIGRAM, Q2W (1 EVERY 2 WEEKS)
     Route: 058
  9. DUPIXENT [Suspect]
     Active Substance: DUPILUMAB
     Dosage: 300 MILLIGRAM, Q2W (1 EVERY 2 WEEKS)
  10. DUPIXENT [Suspect]
     Active Substance: DUPILUMAB
     Dosage: 300 MILLIGRAM, Q2W (1 EVERY 2 WEEKS)
  11. DUPIXENT [Suspect]
     Active Substance: DUPILUMAB
     Dosage: 300 MILLIGRAM, Q2W (1 EVERY 2 WEEKS)
     Route: 058
  12. DUPIXENT [Suspect]
     Active Substance: DUPILUMAB
     Dosage: 300 MILLIGRAM, Q2W (1 EVERY 2 WEEKS)
     Route: 058
  13. OMEPRAZOLE [Concomitant]
     Active Substance: OMEPRAZOLE
  14. OMEPRAZOLE [Concomitant]
     Active Substance: OMEPRAZOLE
     Route: 065
  15. OMEPRAZOLE [Concomitant]
     Active Substance: OMEPRAZOLE
     Route: 065
  16. OMEPRAZOLE [Concomitant]
     Active Substance: OMEPRAZOLE
  17. AMBRISENTAN [Concomitant]
     Active Substance: AMBRISENTAN
  18. AMBRISENTAN [Concomitant]
     Active Substance: AMBRISENTAN
     Route: 065
  19. AMBRISENTAN [Concomitant]
     Active Substance: AMBRISENTAN
     Route: 065
  20. AMBRISENTAN [Concomitant]
     Active Substance: AMBRISENTAN
  21. BENADRYL [Concomitant]
     Active Substance: DIPHENHYDRAMINE HYDROCHLORIDE
  22. BENADRYL [Concomitant]
     Active Substance: DIPHENHYDRAMINE HYDROCHLORIDE
     Route: 065
  23. BENADRYL [Concomitant]
     Active Substance: DIPHENHYDRAMINE HYDROCHLORIDE
     Route: 065
  24. BENADRYL [Concomitant]
     Active Substance: DIPHENHYDRAMINE HYDROCHLORIDE
  25. COENZYME Q10 [Concomitant]
     Active Substance: DIETARY SUPPLEMENT\UBIDECARENONE
  26. COENZYME Q10 [Concomitant]
     Active Substance: DIETARY SUPPLEMENT\UBIDECARENONE
     Route: 065
  27. COENZYME Q10 [Concomitant]
     Active Substance: DIETARY SUPPLEMENT\UBIDECARENONE
     Route: 065
  28. COENZYME Q10 [Concomitant]
     Active Substance: DIETARY SUPPLEMENT\UBIDECARENONE
  29. VALSARTAN [Concomitant]
     Active Substance: VALSARTAN
  30. VALSARTAN [Concomitant]
     Active Substance: VALSARTAN
     Route: 065
  31. VALSARTAN [Concomitant]
     Active Substance: VALSARTAN
     Route: 065
  32. VALSARTAN [Concomitant]
     Active Substance: VALSARTAN
  33. TRIAMCINOLONE ACETONIDE [Concomitant]
     Active Substance: TRIAMCINOLONE ACETONIDE
  34. TRIAMCINOLONE ACETONIDE [Concomitant]
     Active Substance: TRIAMCINOLONE ACETONIDE
     Route: 065
  35. TRIAMCINOLONE ACETONIDE [Concomitant]
     Active Substance: TRIAMCINOLONE ACETONIDE
     Route: 065
  36. TRIAMCINOLONE ACETONIDE [Concomitant]
     Active Substance: TRIAMCINOLONE ACETONIDE
  37. VITAMIN D3 [Concomitant]
     Active Substance: CHOLECALCIFEROL
  38. VITAMIN D3 [Concomitant]
     Active Substance: CHOLECALCIFEROL
     Route: 065
  39. VITAMIN D3 [Concomitant]
     Active Substance: CHOLECALCIFEROL
     Route: 065
  40. VITAMIN D3 [Concomitant]
     Active Substance: CHOLECALCIFEROL
  41. AZELASTINE HYDROCHLORIDE [Concomitant]
     Active Substance: AZELASTINE HYDROCHLORIDE
  42. AZELASTINE HYDROCHLORIDE [Concomitant]
     Active Substance: AZELASTINE HYDROCHLORIDE
     Route: 065
  43. AZELASTINE HYDROCHLORIDE [Concomitant]
     Active Substance: AZELASTINE HYDROCHLORIDE
     Route: 065
  44. AZELASTINE HYDROCHLORIDE [Concomitant]
     Active Substance: AZELASTINE HYDROCHLORIDE
  45. ROSUVASTATIN CALCIUM [Concomitant]
     Active Substance: ROSUVASTATIN CALCIUM
  46. ROSUVASTATIN CALCIUM [Concomitant]
     Active Substance: ROSUVASTATIN CALCIUM
     Route: 065
  47. ROSUVASTATIN CALCIUM [Concomitant]
     Active Substance: ROSUVASTATIN CALCIUM
     Route: 065
  48. ROSUVASTATIN CALCIUM [Concomitant]
     Active Substance: ROSUVASTATIN CALCIUM
  49. VITAMIN B12 [Concomitant]
     Active Substance: CYANOCOBALAMIN
  50. VITAMIN B12 [Concomitant]
     Active Substance: CYANOCOBALAMIN
     Route: 065
  51. VITAMIN B12 [Concomitant]
     Active Substance: CYANOCOBALAMIN
     Route: 065
  52. VITAMIN B12 [Concomitant]
     Active Substance: CYANOCOBALAMIN
  53. ASPIRIN [Concomitant]
     Active Substance: ASPIRIN
  54. ASPIRIN [Concomitant]
     Active Substance: ASPIRIN
     Route: 065
  55. ASPIRIN [Concomitant]
     Active Substance: ASPIRIN
     Route: 065
  56. ASPIRIN [Concomitant]
     Active Substance: ASPIRIN
  57. TACROLIMUS [Concomitant]
     Active Substance: TACROLIMUS
  58. TACROLIMUS [Concomitant]
     Active Substance: TACROLIMUS
     Route: 065
  59. TACROLIMUS [Concomitant]
     Active Substance: TACROLIMUS
     Route: 065
  60. TACROLIMUS [Concomitant]
     Active Substance: TACROLIMUS
  61. BIOTIN [Concomitant]
     Active Substance: BIOTIN
  62. BIOTIN [Concomitant]
     Active Substance: BIOTIN
     Route: 065
  63. BIOTIN [Concomitant]
     Active Substance: BIOTIN
     Route: 065
  64. BIOTIN [Concomitant]
     Active Substance: BIOTIN
  65. MELOXICAM [Concomitant]
     Active Substance: MELOXICAM
  66. MELOXICAM [Concomitant]
     Active Substance: MELOXICAM
     Route: 065
  67. MELOXICAM [Concomitant]
     Active Substance: MELOXICAM
     Route: 065
  68. MELOXICAM [Concomitant]
     Active Substance: MELOXICAM
  69. LOSARTAN POTASSIUM [Concomitant]
     Active Substance: LOSARTAN POTASSIUM
  70. LOSARTAN POTASSIUM [Concomitant]
     Active Substance: LOSARTAN POTASSIUM
     Route: 065
  71. LOSARTAN POTASSIUM [Concomitant]
     Active Substance: LOSARTAN POTASSIUM
     Route: 065
  72. LOSARTAN POTASSIUM [Concomitant]
     Active Substance: LOSARTAN POTASSIUM
  73. TADALAFIL [Concomitant]
     Active Substance: TADALAFIL
  74. TADALAFIL [Concomitant]
     Active Substance: TADALAFIL
     Route: 065
  75. TADALAFIL [Concomitant]
     Active Substance: TADALAFIL
     Route: 065
  76. TADALAFIL [Concomitant]
     Active Substance: TADALAFIL
  77. LATANOPROST [Concomitant]
     Active Substance: LATANOPROST
  78. LATANOPROST [Concomitant]
     Active Substance: LATANOPROST
     Route: 065
  79. LATANOPROST [Concomitant]
     Active Substance: LATANOPROST
     Route: 065
  80. LATANOPROST [Concomitant]
     Active Substance: LATANOPROST
  81. BRIMONIDINE [Concomitant]
     Active Substance: BRIMONIDINE TARTRATE
  82. BRIMONIDINE [Concomitant]
     Active Substance: BRIMONIDINE TARTRATE
     Route: 065
  83. BRIMONIDINE [Concomitant]
     Active Substance: BRIMONIDINE TARTRATE
     Route: 065
  84. BRIMONIDINE [Concomitant]
     Active Substance: BRIMONIDINE TARTRATE
  85. DORZOLAMIDE [Concomitant]
     Active Substance: DORZOLAMIDE
  86. DORZOLAMIDE [Concomitant]
     Active Substance: DORZOLAMIDE
     Route: 065
  87. DORZOLAMIDE [Concomitant]
     Active Substance: DORZOLAMIDE
     Route: 065
  88. DORZOLAMIDE [Concomitant]
     Active Substance: DORZOLAMIDE
  89. TIMOLOL [Concomitant]
     Active Substance: TIMOLOL
  90. TIMOLOL [Concomitant]
     Active Substance: TIMOLOL
     Route: 065
  91. TIMOLOL [Concomitant]
     Active Substance: TIMOLOL
     Route: 065
  92. TIMOLOL [Concomitant]
     Active Substance: TIMOLOL

REACTIONS (7)
  - Dyspnoea [Not Recovered/Not Resolved]
  - Decreased appetite [Unknown]
  - Speech disorder [Unknown]
  - Chest pain [Unknown]
  - Hypoaesthesia [Unknown]
  - Pain [Recovering/Resolving]
  - Headache [Unknown]

NARRATIVE: CASE EVENT DATE: 20250101
